FAERS Safety Report 14225021 (Version 2)
Quarter: 2018Q1

REPORT INFORMATION
  Report Type: Report from Study
  Country: GB (occurrence: GB)
  Receive Date: 20171127
  Receipt Date: 20180119
  Transmission Date: 20180508
  Serious: Yes (Other)
  Sender: FDA-Public Use
  Company Number: GB-ROCHE-1711532

PATIENT
  Sex: Female

DRUGS (1)
  1. ROACTEMRA [Suspect]
     Active Substance: TOCILIZUMAB
     Indication: RHEUMATOID ARTHRITIS
     Route: 058
     Dates: start: 20150714

REACTIONS (10)
  - Lower respiratory tract infection [Unknown]
  - Gastric infection [Unknown]
  - Ill-defined disorder [Unknown]
  - Arthralgia [Unknown]
  - Bronchitis [Unknown]
  - Upper limb fracture [Unknown]
  - Pain [Unknown]
  - Gastric disorder [Unknown]
  - Bone disorder [Unknown]
  - Arthropathy [Unknown]
